FAERS Safety Report 23246252 (Version 1)
Quarter: 2023Q4

REPORT INFORMATION
  Report Type: Spontaneous
  Country: US (occurrence: None)
  Receive Date: 20231130
  Receipt Date: 20231130
  Transmission Date: 20240109
  Serious: Yes (Other)
  Sender: FDA-Public Use
  Company Number: 2023A268965

PATIENT
  Sex: Female

DRUGS (4)
  1. FULVESTRANT [Suspect]
     Active Substance: FULVESTRANT
     Dosage: 500.0MG UNKNOWN
     Route: 030
     Dates: start: 201707
  2. IBRANCE [Suspect]
     Active Substance: PALBOCICLIB
     Indication: Breast cancer female
     Route: 048
     Dates: start: 201707
  3. AROMASIN [Suspect]
     Active Substance: EXEMESTANE
     Indication: Breast cancer female
  4. EXEMESTANE [Suspect]
     Active Substance: EXEMESTANE
     Route: 048

REACTIONS (5)
  - Malignant neoplasm progression [Unknown]
  - Breast cancer metastatic [Unknown]
  - Ischaemic stroke [Unknown]
  - Dementia [Unknown]
  - Eastern Cooperative Oncology Group performance status worsened [Unknown]
